FAERS Safety Report 18873796 (Version 4)
Quarter: 2021Q2

REPORT INFORMATION
  Report Type: Report from Study
  Country: US (occurrence: US)
  Receive Date: 20210210
  Receipt Date: 20210422
  Transmission Date: 20210717
  Serious: Yes (Hospitalization, Other)
  Sender: FDA-Public Use
  Company Number: US-BRISTOL-MYERS SQUIBB COMPANY-BMS-2021-010662

PATIENT
  Age: 59 Year
  Sex: Female
  Weight: 44 kg

DRUGS (21)
  1. ATORVASTATIN [Concomitant]
     Active Substance: ATORVASTATIN
     Indication: HYPERLIPIDAEMIA
     Route: 048
  2. RP1 [Suspect]
     Active Substance: SERINE/THREONINE-PROTEIN KINASE 19
     Dosage: 1X10E7 PFU/ML (TOTAL VOLUME 7 ML), Q2WK
     Route: 036
     Dates: start: 20200804, end: 20200804
  3. OXYCODONE [Concomitant]
     Active Substance: OXYCODONE
     Indication: TUMOUR PAIN
     Dosage: 5MG, AS REQUIRED
     Route: 048
     Dates: start: 20200419
  4. SODIUM HYPOCHLORITE [Concomitant]
     Active Substance: SODIUM HYPOCHLORITE
     Indication: NEOPLASM
     Dosage: 0.0125 PERCENT, QD
     Route: 061
     Dates: start: 20200419
  5. CYCLOBENZAPRINE. [Concomitant]
     Active Substance: CYCLOBENZAPRINE
     Dosage: 10MG, AS NEEDED
     Route: 048
     Dates: start: 20201012
  6. LISINOPRIL. [Concomitant]
     Active Substance: LISINOPRIL
     Indication: HYPERTENSION
     Dosage: 40 MILLIGRAM, QD
     Route: 048
     Dates: start: 1994
  7. SODIUM HYPOCHLORITE [Concomitant]
     Active Substance: SODIUM HYPOCHLORITE
     Indication: WOUND
  8. RP1 [Suspect]
     Active Substance: SERINE/THREONINE-PROTEIN KINASE 19
     Indication: SQUAMOUS CELL CARCINOMA
     Dosage: 1X10E6 PFU/ML (TOTAL 3ML), Q2WK
     Route: 036
     Dates: start: 20200424, end: 20200424
  9. HYDROCHLORTHIAZID [Concomitant]
     Active Substance: HYDROCHLOROTHIAZIDE
     Indication: HYPERTENSION
     Dosage: 12.5 MILLIGRAM, QD
     Route: 048
     Dates: start: 1994
  10. DAKIN [SODIUM HYPOCHLORITE] [Concomitant]
     Active Substance: SODIUM HYPOCHLORITE
     Indication: WOUND
     Dosage: 1 APPLICATION, AS REQUIRED
     Route: 061
     Dates: start: 20200419
  11. CYCLOBENZAPRINE. [Concomitant]
     Active Substance: CYCLOBENZAPRINE
     Indication: MUSCLE SPASMS
     Dosage: 5MG, AS NEEDED
     Route: 048
     Dates: start: 201910, end: 20200928
  12. ENOXAPARIN [Concomitant]
     Active Substance: ENOXAPARIN
     Indication: DEEP VEIN THROMBOSIS
     Dosage: 40 MILLIGRAM, BID
     Route: 048
     Dates: start: 20200420
  13. INDOMETHACIN [INDOMETACIN] [Concomitant]
     Active Substance: INDOMETHACIN
     Indication: PYREXIA
     Dosage: 50MG, AS REQUIRED
     Route: 048
     Dates: start: 20200419
  14. NIVOLUMAB [Suspect]
     Active Substance: NIVOLUMAB
     Indication: SQUAMOUS CELL CARCINOMA
     Dosage: 240 MILLIGRAM, Q2WK
     Route: 042
     Dates: start: 20200508
  15. ATENOLOL. [Concomitant]
     Active Substance: ATENOLOL
     Indication: HYPERTENSION
     Route: 048
  16. GABAPENTIN. [Concomitant]
     Active Substance: GABAPENTIN
     Indication: BACK PAIN
     Dosage: 600 MILLIGRAM, TID
     Route: 048
     Dates: start: 2015
  17. TRAMADOL. [Concomitant]
     Active Substance: TRAMADOL
     Indication: CHILLS
     Dosage: 50MG, AS REQUIRED
     Route: 048
     Dates: start: 20200419
  18. NIVOLUMAB [Suspect]
     Active Substance: NIVOLUMAB
     Dosage: 480 MILLIGRAM, Q4WK
     Route: 042
     Dates: start: 20201218, end: 20210212
  19. HYDROCODONE BITARTRATE AND ACETAMINOPHEN [Concomitant]
     Active Substance: ACETAMINOPHEN\HYDROCODONE BITARTRATE
     Indication: TUMOUR PAIN
     Dosage: 5?325MG, AS REQUIRED
     Route: 048
     Dates: start: 20200316, end: 20200429
  20. CARBAMAZEPINE. [Concomitant]
     Active Substance: CARBAMAZEPINE
     Indication: TUMOUR PAIN
     Route: 048
  21. FERROUS SULFATE. [Concomitant]
     Active Substance: FERROUS SULFATE
     Indication: ANAEMIA
     Dosage: 325 MILLIGRAM, QD
     Route: 048
     Dates: start: 20201012

REACTIONS (4)
  - Diarrhoea [Recovered/Resolved]
  - Failure to thrive [Recovered/Resolved]
  - Hypovolaemic shock [Recovered/Resolved]
  - Pleural effusion [Recovering/Resolving]

NARRATIVE: CASE EVENT DATE: 20210115
